FAERS Safety Report 9522762 (Version 1)
Quarter: 2013Q1

REPORT INFORMATION
  Report Type: Spontaneous
  Country: US (occurrence: None)
  Receive Date: 20130305
  Receipt Date: 20130305
  Transmission Date: 20140127
  Serious: Yes (Other)
  Sender: FDA-Public Use
  Company Number: 163-21880-12080408

PATIENT
  Age: 69 Year
  Sex: Male

DRUGS (6)
  1. REVLIMID (LENALIDOMIDE) (CAPSULES) [Suspect]
     Indication: PLASMA CELL MYELOMA
     Route: 048
     Dates: start: 20120424
  2. NADOLOL (NADOLOL) [Concomitant]
  3. WELLBUTRIN (BUPROPION HYDROCHLORIDE) [Concomitant]
  4. TRAZODONE (TRAZODONE)? [Concomitant]
  5. VELCADE [Concomitant]
  6. DEXAMETHASONE (DEXAMETHASONE) [Concomitant]

REACTIONS (1)
  - Full blood count decreased [None]
